FAERS Safety Report 24837280 (Version 1)
Quarter: 2025Q1

REPORT INFORMATION
  Report Type: Spontaneous
  Country: PT (occurrence: PT)
  Receive Date: 20250113
  Receipt Date: 20250113
  Transmission Date: 20250409
  Serious: Yes (Other)
  Sender: TEVA
  Company Number: None

PATIENT
  Age: 33 Year
  Sex: Female

DRUGS (2)
  1. SULFAMETHOXAZOLE\TRIMETHOPRIM [Suspect]
     Active Substance: SULFAMETHOXAZOLE\TRIMETHOPRIM
     Indication: Urinary tract infection
     Dosage: 1 TABLET EVERY 12 HOURS, COTRIMOXAZOL RATIOPHARM
     Route: 048
     Dates: start: 20190328, end: 20190404
  2. Daflon [Concomitant]
     Indication: Product used for unknown indication
     Route: 048

REACTIONS (4)
  - Rash maculo-papular [Recovered/Resolved]
  - Angioedema [Recovered/Resolved]
  - Rash pruritic [Recovered/Resolved]
  - Rash [Recovered/Resolved]

NARRATIVE: CASE EVENT DATE: 20190404
